FAERS Safety Report 24756524 (Version 1)
Quarter: 2024Q4

REPORT INFORMATION
  Report Type: Report from Study
  Country: US (occurrence: US)
  Receive Date: 20241220
  Receipt Date: 20241220
  Transmission Date: 20250115
  Serious: Yes (Other)
  Sender: ABBVIE
  Company Number: US-ABBVIE-6006506

PATIENT
  Age: 67 Year
  Sex: Female

DRUGS (1)
  1. HUMIRA [Suspect]
     Active Substance: ADALIMUMAB
     Indication: Rheumatoid arthritis
     Dosage: FRIST ADMINISTRATION DATE: AT LEAST FROM 10 YEARS
     Route: 058

REACTIONS (6)
  - Dislocation of vertebra [Recovered/Resolved]
  - Rheumatoid arthritis [Unknown]
  - Spinal osteoarthritis [Unknown]
  - Unevaluable event [Recovered/Resolved]
  - Back pain [Recovered/Resolved]
  - Spondylitis [Unknown]

NARRATIVE: CASE EVENT DATE: 20241001
